FAERS Safety Report 12315259 (Version 1)
Quarter: 2016Q2

REPORT INFORMATION
  Report Type: Spontaneous
  Country: US (occurrence: US)
  Receive Date: 20160428
  Receipt Date: 20160428
  Transmission Date: 20160815
  Serious: No
  Sender: FDA-Public Use
  Company Number: US-ENDO PHARMACEUTICALS INC.-2016-000080

PATIENT
  Age: 61 Year
  Sex: Female
  Weight: 54.48 kg

DRUGS (1)
  1. DOXYCYCLINE HYCLATE 100MG [Suspect]
     Active Substance: DOXYCYCLINE HYCLATE
     Indication: EXPOSURE TO MOULD
     Route: 048
     Dates: start: 20151121

REACTIONS (6)
  - Urine analysis abnormal [Not Recovered/Not Resolved]
  - Eye irritation [Not Recovered/Not Resolved]
  - Eye pain [Not Recovered/Not Resolved]
  - Drug effect decreased [Not Recovered/Not Resolved]
  - Ocular hyperaemia [Not Recovered/Not Resolved]
  - Eye pruritus [Not Recovered/Not Resolved]

NARRATIVE: CASE EVENT DATE: 201512
